FAERS Safety Report 5449851-5 (Version None)
Quarter: 2007Q3

REPORT INFORMATION
  Report Type: 
  Country: None (occurrence: None)
  Receive Date: 20070912
  Receipt Date: 20070822
  Transmission Date: 20080115
  Serious: No
  Sender: FDA-Public Use
  Company Number: US-JNJFOC-20070806557

PATIENT
  Age: 50 Year
  Sex: Female

DRUGS (5)
  1. RISPERDAL [Suspect]
     Indication: SCHIZOPHRENIA
  2. INVEGA [Suspect]
     Indication: SCHIZOPHRENIA
  3. ZOLOFT [Concomitant]
  4. SEROQUEL [Concomitant]
  5. NORFLEX [Concomitant]

REACTIONS (1)
  - MYALGIA [None]
